FAERS Safety Report 8885876 (Version 1)
Quarter: 2012Q4

REPORT INFORMATION
  Report Type: 
  Country: GB (occurrence: GB)
  Receive Date: 20121102
  Receipt Date: 20121102
  Transmission Date: 20130627
  Serious: Yes (Other)
  Sender: FDA-Public Use
  Company Number: GB-PFIZER INC-2012272390

PATIENT
  Age: 34 Year
  Sex: Female
  Weight: 87 kg

DRUGS (4)
  1. CHAMPIX [Suspect]
     Dosage: UNK
     Dates: start: 20120927, end: 20121018
  2. SALAMOL [Concomitant]
     Dosage: UNK
     Dates: start: 20120807
  3. LEVOTHYROXINE [Concomitant]
     Dosage: UNK
     Dates: start: 20120807
  4. FLUCLOXACILLIN [Concomitant]
     Dosage: UNK
     Dates: start: 20120928, end: 20121005

REACTIONS (4)
  - Irritability [Recovering/Resolving]
  - Anxiety [Recovering/Resolving]
  - Anger [Recovering/Resolving]
  - Affect lability [Recovering/Resolving]
